FAERS Safety Report 17652112 (Version 2)
Quarter: 2020Q2

REPORT INFORMATION
  Report Type: Spontaneous
  Country: US (occurrence: US)
  Receive Date: 20200409
  Receipt Date: 20200420
  Transmission Date: 20200713
  Serious: Yes (Hospitalization)
  Sender: FDA-Public Use
  Company Number: US-TEVA-2020-US-1218243

PATIENT
  Age: 51 Year
  Sex: Female

DRUGS (4)
  1. HYDROXYCHLOROQUINE [Suspect]
     Active Substance: HYDROXYCHLOROQUINE
     Dosage: 400 MILLIGRAM DAILY; RATED TO 200MG TWICE DAILY IN THE FIRST YEAR
     Route: 065
  2. PREDNISONE. [Concomitant]
     Active Substance: PREDNISONE
     Indication: SYSTEMIC LUPUS ERYTHEMATOSUS
     Route: 065
  3. HYDROXYCHLOROQUINE [Suspect]
     Active Substance: HYDROXYCHLOROQUINE
     Indication: SYSTEMIC LUPUS ERYTHEMATOSUS
     Dosage: INITIAL DOSAGE NOT STATED; TIT
     Route: 065
  4. RITUXIMAB. [Concomitant]
     Active Substance: RITUXIMAB
     Indication: MYOSITIS
     Route: 050

REACTIONS (9)
  - Atrioventricular block first degree [Not Recovered/Not Resolved]
  - Cardiomyopathy [Recovering/Resolving]
  - Ascites [Recovering/Resolving]
  - Right ventricular dysfunction [Not Recovered/Not Resolved]
  - Cardiac failure [Recovering/Resolving]
  - Toxicity to various agents [Recovering/Resolving]
  - Left ventricular dysfunction [Not Recovered/Not Resolved]
  - Fluid overload [Recovering/Resolving]
  - Diastolic dysfunction [Not Recovered/Not Resolved]
